FAERS Safety Report 21292784 (Version 1)
Quarter: 2022Q3

REPORT INFORMATION
  Report Type: Spontaneous
  Country: US (occurrence: US)
  Receive Date: 20220905
  Receipt Date: 20220905
  Transmission Date: 20221027
  Serious: No
  Sender: FDA-Public Use
  Company Number: US-HORIZON THERAPEUTICS-HZN-2022-005255

PATIENT
  Sex: Male

DRUGS (1)
  1. PROCYSBI [Suspect]
     Active Substance: CYSTEAMINE BITARTRATE
     Indication: Product used for unknown indication
     Dosage: FIRST DOSE
     Route: 065

REACTIONS (1)
  - Vomiting [Recovering/Resolving]

NARRATIVE: CASE EVENT DATE: 20220712
